FAERS Safety Report 8172817-1 (Version None)
Quarter: 2012Q1

REPORT INFORMATION
  Report Type: 
  Country: None (occurrence: None)
  Receive Date: 20120229
  Receipt Date: 20120221
  Transmission Date: 20120608
  Serious: Yes (Death, Hospitalization, Disabling, Other)
  Sender: FDA-Public Use
  Company Number: US-TEVA-319195USA

PATIENT
  Sex: Male

DRUGS (11)
  1. INSULIN GLARGINE [Concomitant]
     Dosage: 50 UNITS AT BEDTIME
     Route: 058
  2. CARVEDILOL [Suspect]
     Dosage: 25 MILLIGRAM;
     Route: 048
     Dates: start: 20111114
  3. DIGOXIN [Concomitant]
     Dosage: .125 MILLIGRAM;
  4. GLIPIZIDE [Concomitant]
     Dosage: 20 MILLIGRAM;
  5. AMIODARONE HCL [Concomitant]
     Dosage: 200 MILLIGRAM;
  6. ENALAPRIL [Concomitant]
     Dosage: 20 MILLIGRAM;
  7. BUMETANIDE [Concomitant]
     Dosage: 2 MILLIGRAM;
     Route: 048
  8. POTASSIUM CHLORIDE [Concomitant]
     Dosage: 20 MILLIEQUIVALENTS;
  9. ATORVASTATIN [Concomitant]
     Dosage: 20 MILLIGRAM;
  10. CLOPIDOGREL [Concomitant]
     Dosage: 75 MILLIGRAM;
  11. AMLODIPINE [Concomitant]
     Dosage: 10 MILLIGRAM;

REACTIONS (6)
  - CARDIAC FLUTTER [None]
  - MYOCARDIAL INFARCTION [None]
  - ACTIVITIES OF DAILY LIVING IMPAIRED [None]
  - RESPIRATORY FAILURE [None]
  - DYSPNOEA [None]
  - DRUG INEFFECTIVE [None]
